FAERS Safety Report 12456444 (Version 1)
Quarter: 2016Q2

REPORT INFORMATION
  Report Type: Spontaneous
  Country: US (occurrence: US)
  Receive Date: 20160610
  Receipt Date: 20160610
  Transmission Date: 20160815
  Serious: No
  Sender: FDA-Public Use
  Company Number: US-PFIZER INC-2016265227

PATIENT
  Sex: Male

DRUGS (3)
  1. NEURONTIN [Suspect]
     Active Substance: GABAPENTIN
     Indication: DEPRESSION
     Dosage: 300 MG, 4X/DAY
  2. NEURONTIN [Suspect]
     Active Substance: GABAPENTIN
     Dosage: 300 MG, 2X/DAY
  3. VALPROIC ACID. [Concomitant]
     Active Substance: VALPROIC ACID
     Indication: DEPRESSION
     Dosage: 500 MG TWO A DAY

REACTIONS (9)
  - Depression [Unknown]
  - Anxiety [Unknown]
  - Dizziness [Unknown]
  - Morbid thoughts [Unknown]
  - Insomnia [Unknown]
  - Balance disorder [Unknown]
  - Condition aggravated [Unknown]
  - Product use issue [Unknown]
  - Vertigo [Unknown]
